FAERS Safety Report 7068090-8 (Version None)
Quarter: 2010Q4

REPORT INFORMATION
  Report Type: 
  Country: None (occurrence: None)
  Receive Date: 20101028
  Receipt Date: 20101015
  Transmission Date: 20110411
  Serious: Yes (Hospitalization)
  Sender: FDA-Public Use
  Company Number: PHHY2010JP69810

PATIENT
  Age: 86 Year
  Sex: Male

DRUGS (6)
  1. FAMVIR [Suspect]
     Indication: HERPES ZOSTER
     Dosage: 1500 MG, PER DAY
     Route: 048
     Dates: start: 20101004, end: 20101007
  2. FAMVIR [Suspect]
     Dosage: 1000 MG, PER DAY
     Route: 048
     Dates: start: 20101008, end: 20101011
  3. LOXOPROFEN SODIUM [Concomitant]
     Dosage: UNK
     Dates: start: 20101004, end: 20101011
  4. LANSOPRAZOLE [Concomitant]
     Dosage: UNK
     Dates: start: 20101004, end: 20101011
  5. AMITRIPTYLINE HYDROCHLORIDE [Concomitant]
     Dosage: UNK
     Dates: start: 20101004, end: 20101011
  6. GABAPENTIN [Concomitant]
     Dosage: UNK
     Dates: start: 20101004, end: 20101006

REACTIONS (2)
  - OEDEMA PERIPHERAL [None]
  - URINE OUTPUT DECREASED [None]
